FAERS Safety Report 9971816 (Version 1)
Quarter: 2014Q1

REPORT INFORMATION
  Report Type: Spontaneous
  Country: US (occurrence: US)
  Receive Date: 20140306
  Receipt Date: 20140306
  Transmission Date: 20141002
  Serious: No
  Sender: FDA-Public Use
  Company Number: US-ABBVIE-13P-163-1148303-00

PATIENT
  Age: 47 Year
  Sex: Male
  Weight: 58.11 kg

DRUGS (8)
  1. HUMIRA [Suspect]
     Indication: RHEUMATOID ARTHRITIS
     Dates: start: 201307
  2. NEXIUM [Concomitant]
     Indication: GASTROOESOPHAGEAL REFLUX DISEASE
  3. ASPIRIN [Concomitant]
     Indication: PROPHYLAXIS
  4. PLAQUENIL [Concomitant]
     Indication: RHEUMATOID ARTHRITIS
  5. MYRBETRIQ [Concomitant]
     Indication: MICTURITION URGENCY
     Dates: start: 2011
  6. LEVOTHYROXINE [Concomitant]
     Indication: HYPERTHYROIDISM
  7. FISH OIL [Concomitant]
     Indication: SUPPLEMENTATION THERAPY
  8. GLUCOSAMINE + CHONDROITIN [Concomitant]
     Indication: SUPPLEMENTATION THERAPY

REACTIONS (2)
  - Device malfunction [Recovered/Resolved]
  - Injection site haemorrhage [Recovered/Resolved]
